FAERS Safety Report 7289533-0 (Version None)
Quarter: 2011Q1

REPORT INFORMATION
  Report Type: 
  Country: None (occurrence: None)
  Receive Date: 20110213
  Receipt Date: 20110207
  Transmission Date: 20110831
  Serious: Yes (Death, Hospitalization)
  Sender: FDA-Public Use
  Company Number: US-ELI_LILLY_AND_COMPANY-US201002005931

PATIENT
  Sex: Male
  Weight: 84.58 kg

DRUGS (9)
  1. LISINOPRIL [Concomitant]
  2. METOPROLOL [Concomitant]
  3. SIMVASTATIN [Concomitant]
  4. ASPIRIN [Concomitant]
  5. FOLIC ACID [Concomitant]
  6. FRAGMIN [Concomitant]
  7. PEMETREXED [Suspect]
     Indication: NON-SMALL CELL LUNG CANCER
     Dosage: 500 MG/M2, OTHER
     Route: 042
     Dates: start: 20090204, end: 20090408
  8. METFORMIN HYDROCHLORIDE [Concomitant]
  9. JANUVIA [Concomitant]

REACTIONS (5)
  - PNEUMONIA [None]
  - MULTI-ORGAN FAILURE [None]
  - FEBRILE NEUTROPENIA [None]
  - RENAL FAILURE ACUTE [None]
  - INTERSTITIAL LUNG DISEASE [None]
